FAERS Safety Report 21328671 (Version 1)
Quarter: 2022Q3

REPORT INFORMATION
  Report Type: Spontaneous
  Country: IN (occurrence: IN)
  Receive Date: 20220913
  Receipt Date: 20220913
  Transmission Date: 20221027
  Serious: Yes (Death)
  Sender: FDA-Public Use
  Company Number: IN-NOVARTISPH-NVSC2021IN184958

PATIENT
  Age: 58 Year
  Sex: Female

DRUGS (2)
  1. GLIVEC [Suspect]
     Active Substance: IMATINIB MESYLATE
     Indication: Chronic myeloid leukaemia
     Dosage: 800 MG (2 X 400MG TABLETS)
     Route: 065
  2. GLIVEC [Suspect]
     Active Substance: IMATINIB MESYLATE
     Dosage: 400 MG (1 X 400MG TABLET).
     Route: 065

REACTIONS (2)
  - Death [Fatal]
  - Blood creatinine abnormal [Unknown]

NARRATIVE: CASE EVENT DATE: 20220313
